FAERS Safety Report 7673832-4 (Version None)
Quarter: 2011Q3

REPORT INFORMATION
  Report Type: 
  Country: None (occurrence: None)
  Receive Date: 20110808
  Receipt Date: 20110726
  Transmission Date: 20111222
  Serious: Yes (Other)
  Sender: FDA-Public Use
  Company Number: AUR-APL-2011-04375

PATIENT
  Age: 61 Year
  Sex: Male
  Weight: 90.25 kg

DRUGS (8)
  1. LORAZEPAM [Concomitant]
  2. VENLAFAXINE [Suspect]
     Indication: PRODUCT USED FOR UNKNOWN INDICATION
     Dosage: 37.5, 150 MG
     Dates: start: 20110525, end: 20110602
  3. VENLAFAXINE [Suspect]
     Indication: PRODUCT USED FOR UNKNOWN INDICATION
     Dosage: 37.5, 150 MG
     Dates: start: 20110603, end: 20110627
  4. VENLAFAXINE [Suspect]
     Indication: PRODUCT USED FOR UNKNOWN INDICATION
     Dosage: 37.5, 150 MG
     Dates: start: 20110628, end: 20110701
  5. DETROL [Concomitant]
  6. TRICOR (ADENOSINE) [Concomitant]
  7. COZAAR [Concomitant]
  8. LIPITOR [Concomitant]

REACTIONS (3)
  - CONDITION AGGRAVATED [None]
  - AGITATION [None]
  - BIPOLAR DISORDER [None]
